FAERS Safety Report 13232860 (Version 12)
Quarter: 2021Q1

REPORT INFORMATION
  Report Type: Report from Study
  Country: None (occurrence: NL)
  Receive Date: 20170214
  Receipt Date: 20210316
  Transmission Date: 20210419
  Serious: Yes (Hospitalization, Other)
  Sender: FDA-Public Use
  Company Number: NL-ABBVIE-17P-114-1872447-00

PATIENT
  Age: 65 Year
  Sex: Female
  Weight: 50 kg

DRUGS (7)
  1. DUODOPA [Suspect]
     Active Substance: CARBIDOPA\LEVODOPA
     Dosage: INCREASED THE CONTINUOUS DOSE
     Route: 050
     Dates: start: 201711, end: 201711
  2. DUODOPA [Suspect]
     Active Substance: CARBIDOPA\LEVODOPA
     Dosage: MD: 6.0, CD: 8.8, ED: 3.0, CND: 4.0
     Route: 050
     Dates: start: 201711
  3. DUODOPA [Suspect]
     Active Substance: CARBIDOPA\LEVODOPA
     Dosage: CD 8.7ML/H, ED 3.0 ML, CND 2.7 ML/H, REMAINS AT 24 HOURS
     Route: 050
  4. MACROGOL [Concomitant]
     Active Substance: POLYETHYLENE GLYCOLS
     Indication: ABNORMAL FAECES
  5. DUODOPA [Suspect]
     Active Substance: CARBIDOPA\LEVODOPA
     Indication: PARKINSON^S DISEASE
     Dosage: MD: 6.0, CD: 8.8, ED: 3.0, CND: 4.0
     Route: 050
     Dates: start: 20101007, end: 201711
  6. DUODOPA [Suspect]
     Active Substance: CARBIDOPA\LEVODOPA
     Route: 050
  7. DUODOPA [Suspect]
     Active Substance: CARBIDOPA\LEVODOPA
     Route: 050

REACTIONS (42)
  - Lower limb fracture [Unknown]
  - Influenza [Recovering/Resolving]
  - Taste disorder [Not Recovered/Not Resolved]
  - Speech disorder [Not Recovered/Not Resolved]
  - Muscle fatigue [Not Recovered/Not Resolved]
  - Decubitus ulcer [Not Recovered/Not Resolved]
  - Mobility decreased [Not Recovered/Not Resolved]
  - Fluid intake reduced [Unknown]
  - Salivary hypersecretion [Not Recovered/Not Resolved]
  - On and off phenomenon [Recovering/Resolving]
  - Wheelchair user [Not Recovered/Not Resolved]
  - Weight abnormal [Not Recovered/Not Resolved]
  - Condition aggravated [Not Recovered/Not Resolved]
  - Hypogeusia [Not Recovered/Not Resolved]
  - Muscle rigidity [Recovering/Resolving]
  - Bradykinesia [Not Recovered/Not Resolved]
  - Diarrhoea [Recovered/Resolved]
  - Sensory loss [Not Recovered/Not Resolved]
  - Asthenia [Not Recovered/Not Resolved]
  - Fatigue [Not Recovered/Not Resolved]
  - Gait disturbance [Not Recovered/Not Resolved]
  - Dysphagia [Not Recovered/Not Resolved]
  - Loss of personal independence in daily activities [Not Recovered/Not Resolved]
  - Fall [Unknown]
  - Cataract [Recovered/Resolved]
  - General physical health deterioration [Not Recovered/Not Resolved]
  - Hypophagia [Recovering/Resolving]
  - Memory impairment [Not Recovered/Not Resolved]
  - Decreased appetite [Recovering/Resolving]
  - Parkinson^s disease [Not Recovered/Not Resolved]
  - Freezing phenomenon [Not Recovered/Not Resolved]
  - Incontinence [Unknown]
  - Supplementation therapy [Not Recovered/Not Resolved]
  - Toothache [Not Recovered/Not Resolved]
  - Aphasia [Not Recovered/Not Resolved]
  - Underdose [Not Recovered/Not Resolved]
  - Impaired healing [Not Recovered/Not Resolved]
  - Weight decreased [Recovered/Resolved]
  - On and off phenomenon [Recovered/Resolved]
  - Hallucination [Recovered/Resolved]
  - Stoma site discharge [Not Recovered/Not Resolved]
  - Feeling abnormal [Not Recovered/Not Resolved]

NARRATIVE: CASE EVENT DATE: 201701
